FAERS Safety Report 25840287 (Version 1)
Quarter: 2025Q3

REPORT INFORMATION
  Report Type: Spontaneous
  Country: US (occurrence: US)
  Receive Date: 20250924
  Receipt Date: 20250924
  Transmission Date: 20251020
  Serious: Yes (Hospitalization, Other)
  Sender: RANBAXY
  Company Number: US-SUN PHARMACEUTICAL INDUSTRIES INC-2025R1-527638

PATIENT
  Age: 68 Year
  Sex: Female

DRUGS (4)
  1. ACYCLOVIR [Suspect]
     Active Substance: ACYCLOVIR
     Indication: Prophylaxis
     Route: 065
  2. METRONIDAZOLE [Suspect]
     Active Substance: METRONIDAZOLE
     Indication: Prophylaxis
     Route: 065
  3. CIPROFLOXACIN [Suspect]
     Active Substance: CIPROFLOXACIN
     Indication: Prophylaxis
     Route: 048
  4. ISAVUCONAZOLE [Suspect]
     Active Substance: ISAVUCONAZOLE
     Indication: Prophylaxis
     Route: 065

REACTIONS (4)
  - Hypotension [Recovered/Resolved]
  - Tachycardia [Recovered/Resolved]
  - Neutropenic colitis [Recovered/Resolved]
  - Staphylococcal infection [Recovered/Resolved]
